FAERS Safety Report 12541743 (Version 1)
Quarter: 2016Q3

REPORT INFORMATION
  Report Type: Spontaneous
  Country: CM (occurrence: CM)
  Receive Date: 20160708
  Receipt Date: 20160708
  Transmission Date: 20161109
  Serious: Yes (Hospitalization)
  Sender: FDA-Public Use
  Company Number: CM-DEPOMED, INC.-CM-2016DEP011401

PATIENT

DRUGS (1)
  1. DICLOFENAC POTASSIUM. [Suspect]
     Active Substance: DICLOFENAC POTASSIUM
     Indication: TONSILLITIS
     Dosage: 2 TABLESPOON 1/2, TID
     Route: 048
     Dates: start: 20160624, end: 20160627

REACTIONS (2)
  - Tonsillar inflammation [Recovering/Resolving]
  - Hyperthermia [Recovering/Resolving]
